FAERS Safety Report 17400523 (Version 1)
Quarter: 2020Q1

REPORT INFORMATION
  Report Type: Spontaneous
  Country: US (occurrence: US)
  Receive Date: 20200211
  Receipt Date: 20200211
  Transmission Date: 20200409
  Serious: No
  Sender: FDA-Public Use
  Company Number: US-ASTRAZENECA-2020SE09653

PATIENT
  Age: 733 Month
  Sex: Female
  Weight: 71.2 kg

DRUGS (5)
  1. LYNPARZA [Suspect]
     Active Substance: OLAPARIB
     Indication: MULTIPLE SCLEROSIS
     Route: 048
     Dates: start: 20200102
  2. LYNPARZA [Suspect]
     Active Substance: OLAPARIB
     Indication: OVARIAN CANCER
     Route: 048
     Dates: start: 20191213
  3. LYNPARZA [Suspect]
     Active Substance: OLAPARIB
     Indication: OVARIAN CANCER
     Route: 048
     Dates: start: 20200102
  4. CORTISONE [Concomitant]
     Active Substance: CORTISONE
     Dates: start: 20200114
  5. LYNPARZA [Suspect]
     Active Substance: OLAPARIB
     Indication: MULTIPLE SCLEROSIS
     Route: 048
     Dates: start: 20191213

REACTIONS (4)
  - Rash [Unknown]
  - Rotator cuff syndrome [Unknown]
  - Musculoskeletal pain [Unknown]
  - Erythema [Unknown]

NARRATIVE: CASE EVENT DATE: 202001
